FAERS Safety Report 5045040-7 (Version None)
Quarter: 2006Q3

REPORT INFORMATION
  Report Type: 
  Country: None (occurrence: None)
  Receive Date: 20060705
  Receipt Date: 20060613
  Transmission Date: 20061208
  Serious: Yes (Other)
  Sender: FDA-Public Use
  Company Number: US200602005208

PATIENT

DRUGS (5)
  1. ZYPREXA [Suspect]
     Dosage: TRANSPLACENTAL
     Route: 064
  2. TOPAMAX /AUS/ (TOPIRAMATE) [Concomitant]
  3. LEXAPRO /USA/ (ESCITALOPRAM) [Concomitant]
  4. ABILIFY /USA/ (ARIPRAZOLE) [Concomitant]
  5. REMERON [Concomitant]

REACTIONS (4)
  - DRUG EXPOSURE DURING PREGNANCY [None]
  - DRUG EXPOSURE VIA BREAST MILK [None]
  - FEEDING DISORDER NEONATAL [None]
  - SEDATION [None]
